FAERS Safety Report 9925277 (Version 2)
Quarter: 2014Q2

REPORT INFORMATION
  Report Type: Spontaneous
  Country: US (occurrence: US)
  Receive Date: 20140226
  Receipt Date: 20140425
  Transmission Date: 20141212
  Serious: No
  Sender: FDA-Public Use
  Company Number: US-LUNDBECK-DKLU1097212

PATIENT
  Sex: Female

DRUGS (8)
  1. ONFI [Suspect]
     Indication: CORTICAL DYSPLASIA
     Dates: start: 20130119
  2. ONFI [Suspect]
     Indication: EPILEPSY
     Dates: start: 20130131
  3. ONFI [Suspect]
     Dates: start: 20130213
  4. ONFI [Suspect]
     Dates: start: 20130213
  5. ONFI [Suspect]
     Dates: start: 20130326
  6. ONFI [Suspect]
     Dates: start: 20130402, end: 20130422
  7. TRILEPTAL [Concomitant]
     Indication: PRODUCT USED FOR UNKNOWN INDICATION
  8. TOPAMAX [Concomitant]
     Indication: PARTIAL SEIZURES

REACTIONS (4)
  - Dyspnoea [Unknown]
  - Weight increased [Recovering/Resolving]
  - Agitation [Unknown]
  - Tremor [Recovered/Resolved]
